FAERS Safety Report 7764517-4 (Version None)
Quarter: 2011Q3

REPORT INFORMATION
  Report Type: 
  Country: None (occurrence: None)
  Receive Date: 20110921
  Receipt Date: 20110916
  Transmission Date: 20111222
  Serious: Yes (Hospitalization)
  Sender: FDA-Public Use
  Company Number: ES-ABBOTT-11P-144-0840952-00

PATIENT
  Age: 59 Year
  Sex: Female

DRUGS (2)
  1. ZEMPLAR [Suspect]
     Indication: PROPHYLAXIS
  2. ZEMPLAR [Suspect]
     Indication: HYPERPARATHYROIDISM SECONDARY
     Route: 048
     Dates: start: 20110701, end: 20110701

REACTIONS (3)
  - RENAL FAILURE [None]
  - SKIN LESION [None]
  - PYREXIA [None]
